FAERS Safety Report 4358308-4 (Version None)
Quarter: 2004Q2

REPORT INFORMATION
  Report Type: 
  Country: None (occurrence: None)
  Receive Date: 20040511
  Receipt Date: 20040428
  Transmission Date: 20050107
  Serious: Yes (Hospitalization)
  Sender: FDA-Public Use
  Company Number: US-JNJFOC-20040105213

PATIENT
  Age: 64 Year
  Sex: Male
  Weight: 73 kg

DRUGS (10)
  1. INFLIXIMAB (INFLIXIMAB, RECOMBINANT) LYOPHILIZIDE POWDER [Suspect]
     Indication: CROHN'S DISEASE
     Dosage: 5 MG/KG, INTRAVENOUS
     Route: 042
     Dates: start: 20020702
  2. INFLIXIMAB (INFLIXIMAB, RECOMBINANT) LYOPHILIZIDE POWDER [Suspect]
     Indication: CROHN'S DISEASE
     Dosage: 5 MG/KG, INTRAVENOUS
     Route: 042
     Dates: start: 20020911
  3. INFLIXIMAB (INFLIXIMAB, RECOMBINANT) LYOPHILIZIDE POWDER [Suspect]
     Indication: CROHN'S DISEASE
     Dosage: 5 MG/KG, INTRAVENOUS
     Route: 042
     Dates: start: 20021119
  4. INFLIXIMAB (INFLIXIMAB, RECOMBINANT) LYOPHILIZIDE POWDER [Suspect]
     Indication: CROHN'S DISEASE
     Dosage: 5 MG/KG, INTRAVENOUS
     Route: 042
     Dates: start: 20030117
  5. INFLIXIMAB (INFLIXIMAB, RECOMBINANT) LYOPHILIZIDE POWDER [Suspect]
     Indication: CROHN'S DISEASE
     Dosage: 5 MG/KG, INTRAVENOUS
     Route: 042
     Dates: start: 20030312
  6. INFLIXIMAB (INFLIXIMAB, RECOMBINANT) LYOPHILIZIDE POWDER [Suspect]
     Indication: CROHN'S DISEASE
     Dosage: 5 MG/KG, INTRAVENOUS
     Route: 042
     Dates: start: 20030501
  7. INFLIXIMAB (INFLIXIMAB, RECOMBINANT) LYOPHILIZIDE POWDER [Suspect]
     Indication: CROHN'S DISEASE
     Dosage: 5 MG/KG, INTRAVENOUS
     Route: 042
     Dates: start: 20030627
  8. INFLIXIMAB (INFLIXIMAB, RECOMBINANT) LYOPHILIZIDE POWDER [Suspect]
     Indication: CROHN'S DISEASE
     Dosage: 5 MG/KG, INTRAVENOUS
     Route: 042
     Dates: start: 20030822
  9. INFLIXIMAB (INFLIXIMAB, RECOMBINANT) LYOPHILIZIDE POWDER [Suspect]
     Indication: CROHN'S DISEASE
     Dosage: 5 MG/KG, INTRAVENOUS
     Route: 042
     Dates: start: 20031017
  10. METHOTREXATE [Concomitant]

REACTIONS (2)
  - CONTUSION [None]
  - SPINAL CORD DISORDER [None]
